FAERS Safety Report 19707094 (Version 2)
Quarter: 2021Q3

REPORT INFORMATION
  Report Type: Spontaneous
  Country: IN (occurrence: IN)
  Receive Date: 20210817
  Receipt Date: 20210914
  Transmission Date: 20211014
  Serious: Yes (Other)
  Sender: FDA-Public Use
  Company Number: IN-LUPIN PHARMACEUTICALS INC.-2021-14718

PATIENT
  Age: 26 Year
  Sex: Female

DRUGS (4)
  1. LIPIODOL [Suspect]
     Active Substance: ETHIODIZED OIL
     Indication: THERAPEUTIC EMBOLISATION
     Dosage: UNK (4 ML OF 20% LIPIODOL SOLUTION MIXED WITH 1 ML OF HISTOACRYL GLUE SOLUTION WAS FLUSHED WITH 5% D
     Route: 065
  2. DEXTROSE. [Suspect]
     Active Substance: DEXTROSE
     Indication: THERAPEUTIC EMBOLISATION
     Dosage: UNK4 ML OF 20% LIPIODOL SOLUTION MIXED WITH 1 ML OF HISTOACRYL GLUE SOLUTION WAS FLUSHED WITH 5% DEX
     Route: 065
  3. HISTOACRYL [Suspect]
     Active Substance: ENBUCRILATE
     Indication: THERAPEUTIC EMBOLISATION
     Dosage: UNK,4 ML OF 20% LIPIODOL SOLUTION MIXED WITH 1 ML OF HISTOACRYL GLUE SOLUTION WAS FLUSHED WITH 5% DE
     Route: 065
  4. BETAMETHASONE. [Suspect]
     Active Substance: BETAMETHASONE
     Indication: PRODUCT USED FOR UNKNOWN INDICATION
     Dosage: 12 MILLIGRAM (RECEIVED 2 DOSES, INJECTIONS ADMINISTERED 24H APART)
     Route: 065

REACTIONS (2)
  - Maternal exposure during pregnancy [Unknown]
  - Premature delivery [Unknown]
